FAERS Safety Report 13951821 (Version 3)
Quarter: 2019Q1

REPORT INFORMATION
  Report Type: Report from Study
  Country: AT (occurrence: AT)
  Receive Date: 20170908
  Receipt Date: 20190328
  Transmission Date: 20190417
  Serious: Yes (Hospitalization, Other)
  Sender: FDA-Public Use
  Company Number: AT-ALLERGAN-1704413US

PATIENT
  Sex: Male

DRUGS (4)
  1. WICK [Suspect]
     Active Substance: CAMPHOR
     Indication: NASOPHARYNGITIS
     Dosage: 30 ML, QD
     Route: 048
     Dates: start: 20161008, end: 20161009
  2. TEMESTA [Concomitant]
  3. ESCITALOPRAM OXALATE UNK [Suspect]
     Active Substance: ESCITALOPRAM OXALATE
     Indication: ANXIETY
     Dosage: 10 MG, QD
     Dates: start: 20151015, end: 20161009
  4. ESCITALOPRAM OXALATE UNK [Suspect]
     Active Substance: ESCITALOPRAM OXALATE
     Dosage: 20 MG, QD
     Route: 048
     Dates: start: 20161010, end: 20161013

REACTIONS (11)
  - Anxiety [Unknown]
  - Serotonin syndrome [Recovered/Resolved]
  - Restlessness [Unknown]
  - Cognitive disorder [Unknown]
  - Panic attack [Unknown]
  - Dyspnoea [Unknown]
  - Hyperreflexia [Unknown]
  - Malaise [Unknown]
  - Tachycardia [Unknown]
  - Hyperhidrosis [Unknown]
  - Tremor [Unknown]

NARRATIVE: CASE EVENT DATE: 20161009
